FAERS Safety Report 6740824-9 (Version None)
Quarter: 2010Q2

REPORT INFORMATION
  Report Type: 
  Country: None (occurrence: None)
  Receive Date: 20100525
  Receipt Date: 20100525
  Transmission Date: 20101027
  Serious: Yes (Death, Life-Threatening)
  Sender: FDA-Public Use
  Company Number: None

PATIENT
  Age: 52 Year
  Sex: Female
  Weight: 99 kg

DRUGS (1)
  1. HEPARIN [Suspect]
     Indication: MYOCARDIAL INFARCTION
     Dosage: 1000 UNITS PER HOUR IV DRIP
     Route: 041
     Dates: start: 20100204, end: 20100205

REACTIONS (5)
  - ACUTE MYOCARDIAL INFARCTION [None]
  - BRAIN HERNIATION [None]
  - CEREBRAL HAEMORRHAGE [None]
  - HEART RATE DECREASED [None]
  - UNRESPONSIVE TO STIMULI [None]
